FAERS Safety Report 18477982 (Version 2)
Quarter: 2025Q2

REPORT INFORMATION
  Report Type: Report from Study
  Country: FR (occurrence: FR)
  Receive Date: 20201108
  Receipt Date: 20250629
  Transmission Date: 20250716
  Serious: Yes (Other)
  Sender: AUROBINDO
  Company Number: FR-SA-2020SA205092

PATIENT
  Age: 43 Year
  Sex: Female
  Weight: 52 kg

DRUGS (5)
  1. IMATINIB [Suspect]
     Active Substance: IMATINIB
     Indication: Crohn^s disease
     Dosage: 400 MILLIGRAM, ONCE A DAY
     Route: 048
  2. IMATINIB [Suspect]
     Active Substance: IMATINIB
     Indication: Chronic myeloid leukaemia
  3. AZATHIOPRINE [Suspect]
     Active Substance: AZATHIOPRINE
     Indication: Crohn^s disease
     Route: 065
  4. MESALAMINE [Suspect]
     Active Substance: MESALAMINE
     Indication: Crohn^s disease
     Route: 065
  5. MERCAPTOPURINE [Suspect]
     Active Substance: MERCAPTOPURINE
     Indication: Chronic myeloid leukaemia
     Route: 065

REACTIONS (3)
  - Therapy non-responder [Unknown]
  - Off label use [Unknown]
  - Therapeutic response unexpected [Unknown]
